FAERS Safety Report 13468959 (Version 2)
Quarter: 2017Q2

REPORT INFORMATION
  Report Type: Spontaneous
  Country: FI (occurrence: FI)
  Receive Date: 20170421
  Receipt Date: 20170502
  Transmission Date: 20170830
  Serious: Yes (Hospitalization)
  Sender: FDA-Public Use
  Company Number: FI-SA-2017SA066488

PATIENT
  Age: 57 Year
  Sex: Male

DRUGS (6)
  1. ASASANTIN [Concomitant]
     Active Substance: ASPIRIN\DIPYRIDAMOLE
     Dosage: (STRENGTH: 200/25 MG)
  2. LANTUS [Suspect]
     Active Substance: INSULIN GLARGINE
     Indication: TYPE 1 DIABETES MELLITUS
     Dosage: DOSE:37 UNIT(S)
     Route: 065
  3. NEUROTOL [Concomitant]
     Dosage: STRENGTH: 200 MG
  4. HUMALOG [Suspect]
     Active Substance: INSULIN LISPRO
     Indication: TYPE 1 DIABETES MELLITUS
     Dosage: DOSE: 15-20 U WITH MEALS
     Route: 065
  5. GABAPENTIN. [Concomitant]
     Active Substance: GABAPENTIN
  6. ATORVASTATIN [Concomitant]
     Active Substance: ATORVASTATIN
     Dosage: STRENGTH: 40 MG

REACTIONS (9)
  - Coma scale abnormal [Recovering/Resolving]
  - Heart rate decreased [Recovering/Resolving]
  - Oxygen saturation decreased [Recovering/Resolving]
  - Product use issue [Unknown]
  - Blood pressure decreased [Recovering/Resolving]
  - Body temperature decreased [Recovering/Resolving]
  - Hyperhidrosis [Recovering/Resolving]
  - Loss of consciousness [Recovering/Resolving]
  - Hypoglycaemia [Unknown]

NARRATIVE: CASE EVENT DATE: 20170211
